FAERS Safety Report 9233088 (Version 1)
Quarter: 2013Q2

REPORT INFORMATION
  Report Type: Spontaneous
  Country: AU (occurrence: AU)
  Receive Date: 20130416
  Receipt Date: 20130416
  Transmission Date: 20140414
  Serious: Yes (Other)
  Sender: FDA-Public Use
  Company Number: PHHY2013AU035904

PATIENT
  Sex: Female

DRUGS (1)
  1. ZOMETA [Suspect]
     Dosage: UNK UKN, TWO ZOMETA EVERY SIX WEEK

REACTIONS (7)
  - Breast cancer [Unknown]
  - Metastases to bone [Unknown]
  - Grief reaction [Unknown]
  - Myalgia [Unknown]
  - Arthralgia [Unknown]
  - Bone pain [Unknown]
  - Pain [Unknown]
